FAERS Safety Report 8576415-7 (Version None)
Quarter: 2012Q3

REPORT INFORMATION
  Report Type: 
  Country: None (occurrence: None)
  Receive Date: 20120807
  Receipt Date: 20120112
  Transmission Date: 20120928
  Serious: Yes (Other)
  Sender: FDA-Public Use
  Company Number: US-ROCHE-1097691

PATIENT
  Sex: Male

DRUGS (7)
  1. XOLAIR [Suspect]
     Indication: RHINITIS SEASONAL
  2. FLUTICASONE PROPIONATE [Concomitant]
  3. PULMICORT [Concomitant]
  4. XOLAIR [Suspect]
     Indication: ASTHMA
     Dates: start: 20040101, end: 20060101
  5. ALBUTEROL [Concomitant]
  6. SINGULAIR [Concomitant]
  7. PREDNISONE [Concomitant]

REACTIONS (5)
  - INFLUENZA LIKE ILLNESS [None]
  - CHEST DISCOMFORT [None]
  - MALAISE [None]
  - COUGH [None]
  - WHEEZING [None]
